FAERS Safety Report 15027278 (Version 1)
Quarter: 2018Q2

REPORT INFORMATION
  Report Type: Spontaneous
  Country: DE (occurrence: DE)
  Receive Date: 20180619
  Receipt Date: 20180619
  Transmission Date: 20180711
  Serious: Yes (Other)
  Sender: FDA-Public Use
  Company Number: DE-TEVA-2018-DE-891873

PATIENT
  Age: 57 Year
  Sex: Female
  Weight: 54 kg

DRUGS (2)
  1. AMOXICILLIN. [Suspect]
     Active Substance: AMOXICILLIN
     Indication: JAW CYST
     Dosage: 2000 MILLIGRAM DAILY;
     Route: 048
  2. CLEXANE [Concomitant]
     Active Substance: ENOXAPARIN SODIUM
     Indication: FRACTURE
     Dosage: 4000 IU (INTERNATIONAL UNIT) DAILY;
     Route: 058

REACTIONS (2)
  - Pruritus generalised [Unknown]
  - Rash generalised [Unknown]

NARRATIVE: CASE EVENT DATE: 20180129
